FAERS Safety Report 8474375-0 (Version None)
Quarter: 2012Q2

REPORT INFORMATION
  Report Type: 
  Country: None (occurrence: None)
  Receive Date: 20120628
  Receipt Date: 20120620
  Transmission Date: 20120825
  Serious: Yes (Other)
  Sender: FDA-Public Use
  Company Number: US-MYLANLABS-2011S1026146

PATIENT
  Age: 70 Year
  Sex: Male

DRUGS (5)
  1. CLOZAPINE [Suspect]
     Indication: SCHIZOPHRENIA, PARANOID TYPE
     Route: 048
     Dates: end: 20111201
  2. PROZAC [Concomitant]
     Indication: DEPRESSION
     Route: 048
  3. CLOZAPINE [Suspect]
     Route: 048
     Dates: start: 20120517, end: 20120528
  4. CLOZAPINE [Suspect]
     Route: 048
     Dates: start: 20111201, end: 20120516
  5. DEPAKOTE ER [Concomitant]
     Indication: SCHIZOPHRENIA, PARANOID TYPE
     Route: 048

REACTIONS (2)
  - GRANULOCYTOPENIA [None]
  - LEUKOPENIA [None]
